FAERS Safety Report 4445529-5 (Version None)
Quarter: 2004Q3

REPORT INFORMATION
  Report Type: 
  Country: None (occurrence: None)
  Receive Date: 20040910
  Receipt Date: 20040830
  Transmission Date: 20050211
  Serious: Yes (Other)
  Sender: FDA-Public Use
  Company Number: US-JNJFOC-20030906608

PATIENT
  Sex: Male
  Weight: 107.5 kg

DRUGS (6)
  1. REMICADE [Suspect]
     Route: 042
  2. COLESTID [Concomitant]
  3. PRILOSEC [Concomitant]
  4. CIPRO [Concomitant]
  5. IMURAN [Concomitant]
  6. PENTASA [Concomitant]

REACTIONS (3)
  - HYPEROXALURIA [None]
  - NEPHROLITHIASIS [None]
  - PNEUMONIA [None]
